FAERS Safety Report 7877786-7 (Version None)
Quarter: 2011Q4

REPORT INFORMATION
  Report Type: 
  Country: None (occurrence: None)
  Receive Date: 20111031
  Receipt Date: 20111031
  Transmission Date: 20120403
  Serious: Yes (Other)
  Sender: FDA-Public Use
  Company Number: None

PATIENT
  Age: 61 Year
  Sex: Male
  Weight: 97.975 kg

DRUGS (1)
  1. BENICAR [Suspect]
     Dosage: 1
     Route: 048
     Dates: start: 20110201, end: 20111020

REACTIONS (7)
  - MOOD ALTERED [None]
  - DYSPHAGIA [None]
  - INSOMNIA [None]
  - HYPOTENSION [None]
  - ANXIETY [None]
  - CONFUSIONAL STATE [None]
  - NO THERAPEUTIC RESPONSE [None]
